FAERS Safety Report 20793466 (Version 2)
Quarter: 2022Q2

REPORT INFORMATION
  Report Type: Spontaneous
  Country: CZ (occurrence: None)
  Receive Date: 20220506
  Receipt Date: 20220518
  Transmission Date: 20220721
  Serious: Yes (Death)
  Sender: FDA-Public Use
  Company Number: CZ-ROCHE-3086398

PATIENT
  Age: 68 Year
  Sex: Male

DRUGS (1)
  1. OBINUTUZUMAB [Suspect]
     Active Substance: OBINUTUZUMAB
     Indication: Follicular lymphoma
     Dosage: MAINTENANCE TREATMENT STARTED 12/2021, SCHEDULED APPLICATION EVERY 3 MONTHS FOR 2 YEARS.
     Route: 042
     Dates: start: 202104, end: 202109

REACTIONS (2)
  - COVID-19 [Fatal]
  - Pneumonia viral [Fatal]
